FAERS Safety Report 5641585-7 (Version None)
Quarter: 2008Q1

REPORT INFORMATION
  Report Type: 
  Country: None (occurrence: None)
  Receive Date: 20080227
  Receipt Date: 20071116
  Transmission Date: 20080703
  Serious: No
  Sender: FDA-Public Use
  Company Number: A0694914A

PATIENT
  Sex: Female

DRUGS (1)
  1. NICORETTE [Suspect]
     Dates: start: 20061117

REACTIONS (5)
  - GINGIVAL INFECTION [None]
  - INTENTIONAL DRUG MISUSE [None]
  - PERIODONTAL DISEASE [None]
  - TOOTH DISORDER [None]
  - TOOTH FRACTURE [None]
